FAERS Safety Report 18598326 (Version 1)
Quarter: 2020Q4

REPORT INFORMATION
  Report Type: Spontaneous
  Country: CN (occurrence: CN)
  Receive Date: 20201210
  Receipt Date: 20201210
  Transmission Date: 20210114
  Serious: Yes (Other)
  Sender: FDA-Public Use
  Company Number: CN-ROCHE-2726928

PATIENT
  Age: 68 Year
  Sex: Male

DRUGS (18)
  1. DEXAMETHASONE. [Concomitant]
     Active Substance: DEXAMETHASONE
     Indication: NON-HODGKIN^S LYMPHOMA
     Dosage: ON DAY1
     Dates: start: 20200409
  2. DEXAMETHASONE. [Concomitant]
     Active Substance: DEXAMETHASONE
     Dosage: ON DAY1-5
     Dates: start: 20200503
  3. PREDNISONE. [Concomitant]
     Active Substance: PREDNISONE
     Indication: NON-HODGKIN^S LYMPHOMA
     Dosage: ON DAY2-5
     Dates: start: 20200409
  4. EPIRUBICIN [Concomitant]
     Active Substance: EPIRUBICIN
     Indication: NON-HODGKIN^S LYMPHOMA
     Dosage: ON DAY1
     Dates: start: 20201103
  5. DOXORUBICIN HYDROCHLORIDE LIPOSOME [Concomitant]
     Active Substance: DOXORUBICIN HYDROCHLORIDE
     Indication: NON-HODGKIN^S LYMPHOMA
     Dosage: ON DAY1
     Dates: start: 20200409
  6. CYTARABINE. [Concomitant]
     Active Substance: CYTARABINE
     Indication: NON-HODGKIN^S LYMPHOMA
     Route: 037
     Dates: start: 20200101
  7. VINDESINE [Concomitant]
     Active Substance: VINDESINE
     Indication: NON-HODGKIN^S LYMPHOMA
     Dosage: ON DAY1
     Dates: start: 20200409
  8. ETOPOSIDE. [Concomitant]
     Active Substance: ETOPOSIDE
     Dosage: ON DAY1
     Dates: start: 20201103
  9. DEXAMETHASONE. [Concomitant]
     Active Substance: DEXAMETHASONE
     Dosage: ON DAY1-5
     Dates: start: 20201103
  10. PREDNISONE. [Concomitant]
     Active Substance: PREDNISONE
     Dosage: ON DAY4-5 ON 10 JUN 2020, 03 JUL 2020, 24 JUL 2020, 20 AUG 2020
  11. METHOTREXATE. [Concomitant]
     Active Substance: METHOTREXATE
     Indication: NON-HODGKIN^S LYMPHOMA
     Route: 037
     Dates: start: 20200101
  12. METHOTREXATE. [Concomitant]
     Active Substance: METHOTREXATE
     Dates: start: 20200927
  13. MABTHERA [Suspect]
     Active Substance: RITUXIMAB
     Indication: NON-HODGKIN^S LYMPHOMA
     Route: 065
     Dates: start: 20200409
  14. DEXAMETHASONE. [Concomitant]
     Active Substance: DEXAMETHASONE
     Route: 037
     Dates: start: 20200101
  15. CYCLOPHOSPHAMIDE. [Concomitant]
     Active Substance: CYCLOPHOSPHAMIDE
     Indication: NON-HODGKIN^S LYMPHOMA
     Dosage: ON DAY1
     Dates: start: 20200409
  16. ETOPOSIDE. [Concomitant]
     Active Substance: ETOPOSIDE
     Indication: NON-HODGKIN^S LYMPHOMA
     Dosage: ON DAY1
     Dates: start: 20200503
  17. DEXAMETHASONE. [Concomitant]
     Active Substance: DEXAMETHASONE
     Dosage: ON DAY1-3 ON 10 JUN 2020, 03 JUL 2020, 24 JUL 2020, 20 AUG 2020
  18. ETOPOSIDE. [Concomitant]
     Active Substance: ETOPOSIDE
     Dosage: ON DAY1-3 ON 10 JUN 2020, 03 JUL 2020, 24 JUL 2020, 20 AUG 2020

REACTIONS (2)
  - Infection [Unknown]
  - Blood count abnormal [Unknown]
